FAERS Safety Report 7857292-6 (Version None)
Quarter: 2011Q4

REPORT INFORMATION
  Report Type: 
  Country: None (occurrence: None)
  Receive Date: 20111027
  Receipt Date: 20111017
  Transmission Date: 20120403
  Serious: No
  Sender: FDA-Public Use
  Company Number: US-BIOGENIDEC-2011BI024689

PATIENT
  Age: 44 Year
  Sex: Female

DRUGS (4)
  1. AVONEX [Concomitant]
     Route: 030
  2. AVONEX [Concomitant]
     Indication: MULTIPLE SCLEROSIS
     Route: 030
  3. NEURONTIN [Concomitant]
     Indication: SENSORY DISTURBANCE
  4. TYSABRI [Suspect]
     Indication: MULTIPLE SCLEROSIS
     Route: 042
     Dates: start: 20110630

REACTIONS (10)
  - DECREASED APPETITE [None]
  - NAUSEA [None]
  - MULTIPLE SCLEROSIS RELAPSE [None]
  - SENSORY DISTURBANCE [None]
  - HYPOAESTHESIA [None]
  - FATIGUE [None]
  - ALOPECIA [None]
  - HEAT ILLNESS [None]
  - DEPRESSION [None]
  - URINARY INCONTINENCE [None]
